FAERS Safety Report 6771780-5 (Version None)
Quarter: 2010Q2

REPORT INFORMATION
  Report Type: 
  Country: None (occurrence: None)
  Receive Date: 20100616
  Receipt Date: 20100201
  Transmission Date: 20101027
  Serious: No
  Sender: FDA-Public Use
  Company Number: US-ASTRAZENECA-2010SE04490

PATIENT
  Age: 795 Month
  Sex: Female
  Weight: 63.5 kg

DRUGS (7)
  1. ATACAND [Suspect]
     Route: 048
     Dates: start: 20020101
  2. LIPITOR [Concomitant]
     Indication: BLOOD CHOLESTEROL
  3. FOLIC ACID [Concomitant]
  4. ASPIRIN [Concomitant]
  5. CLARINEX [Concomitant]
     Indication: MULTIPLE ALLERGIES
  6. CALTRATE W/ VITAMIN D [Concomitant]
  7. LIPO-FLAVINOID [Concomitant]
     Indication: TINNITUS

REACTIONS (1)
  - BLOOD PRESSURE INCREASED [None]
